FAERS Safety Report 20229367 (Version 2)
Quarter: 2021Q4

REPORT INFORMATION
  Report Type: Report from Study
  Country: TW (occurrence: TW)
  Receive Date: 20211225
  Receipt Date: 20211228
  Transmission Date: 20220303
  Serious: Yes (Death)
  Sender: FDA-Public Use
  Company Number: TW-NOVARTISPH-NVSC2021TW295194

PATIENT
  Age: 72 Year
  Sex: Male

DRUGS (1)
  1. CAPMATINIB [Suspect]
     Active Substance: CAPMATINIB
     Indication: Non-small cell lung cancer
     Dosage: 400 MG, BID
     Route: 048
     Dates: start: 20210927

REACTIONS (1)
  - Death [Fatal]
